FAERS Safety Report 6030063-1 (Version None)
Quarter: 2009Q1

REPORT INFORMATION
  Report Type: 
  Country: None (occurrence: None)
  Receive Date: 20090105
  Receipt Date: 20090105
  Transmission Date: 20090719
  Serious: Yes (Life-Threatening, Hospitalization, Other)
  Sender: FDA-Public Use
  Company Number: None

PATIENT
  Sex: Female
  Weight: 77.1115 kg

DRUGS (1)
  1. ISOSORBIDE DINITRATE TAB [Suspect]
     Indication: ANGINA PECTORIS
     Dosage: 60 MG ONCE A DAY PO
     Route: 048
     Dates: start: 20080709, end: 20081009

REACTIONS (6)
  - BACK PAIN [None]
  - CONVULSION [None]
  - DIZZINESS [None]
  - GAIT DISTURBANCE [None]
  - MUSCULOSKELETAL PAIN [None]
  - PRODUCT QUALITY ISSUE [None]
